FAERS Safety Report 8513258-4 (Version None)
Quarter: 2012Q3

REPORT INFORMATION
  Report Type: 
  Country: None (occurrence: None)
  Receive Date: 20120716
  Receipt Date: 20120705
  Transmission Date: 20120928
  Serious: Yes (Hospitalization, Other)
  Sender: FDA-Public Use
  Company Number: US-ELI_LILLY_AND_COMPANY-US201207002287

PATIENT
  Sex: Male

DRUGS (8)
  1. METFORMIN HYDROCHLORIDE [Concomitant]
  2. LANTUS [Concomitant]
     Indication: INSULIN-REQUIRING TYPE 2 DIABETES MELLITUS
     Dosage: 1 DF, BID
  3. BYETTA [Suspect]
     Indication: INSULIN-REQUIRING TYPE 2 DIABETES MELLITUS
     Route: 058
  4. BUMEX [Concomitant]
  5. METOPROLOL TARTRATE [Concomitant]
  6. NOVOLOG [Concomitant]
  7. GLYBURIDE [Concomitant]
     Dosage: UNK
  8. SPIRONOLACTONE [Concomitant]

REACTIONS (6)
  - MYOCARDIAL INFARCTION [None]
  - RENAL FAILURE [None]
  - CARDIAC FAILURE [None]
  - LIMB INJURY [None]
  - BLOOD GLUCOSE INCREASED [None]
  - OFF LABEL USE [None]
